FAERS Safety Report 16265814 (Version 1)
Quarter: 2019Q2

REPORT INFORMATION
  Report Type: Spontaneous
  Country: GB (occurrence: GB)
  Receive Date: 20190502
  Receipt Date: 20190502
  Transmission Date: 20190711
  Serious: Yes (Hospitalization, Other)
  Sender: FDA-Public Use
  Company Number: GB-TEVA-2019-GB-1044372

PATIENT
  Age: 83 Year
  Sex: Male
  Weight: 79.37 kg

DRUGS (5)
  1. DABIGATRAN ETEXILATE [Concomitant]
     Active Substance: DABIGATRAN ETEXILATE
     Dosage: 300 MILLIGRAM DAILY; WITHDRAWN
     Dates: start: 20190227, end: 20190328
  2. FUROSEMIDE. [Suspect]
     Active Substance: FUROSEMIDE
     Indication: EYE DISORDER
     Route: 048
  3. DYMISTA [Concomitant]
     Active Substance: AZELASTINE HYDROCHLORIDE\FLUTICASONE PROPIONATE
     Dosage: 2 DOSAGE FORMS DAILY; IN EACH NOSTRIL TWICE DAILY.
     Route: 045
     Dates: start: 20190129
  4. NASEPTIN [Concomitant]
     Active Substance: CHLORHEXIDINE HYDROCHLORIDE\NEOMYCIN SULFATE
     Dosage: 4 DOSAGE FORMS DAILY; APPLY IN BOTH NOSTRILS FOR 10 DAYS.
     Route: 045
     Dates: start: 20190129
  5. BISOPROLOL [Concomitant]
     Active Substance: BISOPROLOL
     Dosage: 2.5 MILLIGRAM DAILY;
     Dates: start: 20190227

REACTIONS (2)
  - Melaena [Recovering/Resolving]
  - Dyspnoea [Unknown]

NARRATIVE: CASE EVENT DATE: 20190319
